FAERS Safety Report 9822090 (Version 35)
Quarter: 2017Q1

REPORT INFORMATION
  Report Type: Report from Study
  Country: CA (occurrence: CA)
  Receive Date: 20140116
  Receipt Date: 20170116
  Transmission Date: 20170429
  Serious: Yes (Hospitalization, Other)
  Sender: FDA-Public Use
  Company Number: PHHY2013CA141867

PATIENT
  Age: 66 Year
  Sex: Male

DRUGS (7)
  1. SANDOSTATIN LAR DEPOT [Suspect]
     Active Substance: OCTREOTIDE ACETATE
     Dosage: 60 MG, ONCE/SINGLE (EXTRA DOSE)
     Route: 030
  2. SANDOSTATIN LAR DEPOT [Suspect]
     Active Substance: OCTREOTIDE ACETATE
     Dosage: 30 MG, TIW EVERY 3 WEEKS
     Route: 030
  3. SANDOSTATIN LAR DEPOT [Suspect]
     Active Substance: OCTREOTIDE ACETATE
     Indication: NEUROENDOCRINE TUMOUR
     Dosage: 30 MG, QMO (EVERY 4 WEEKS)
     Route: 030
     Dates: start: 20131018
  4. SANDOSTATIN [Suspect]
     Active Substance: OCTREOTIDE ACETATE
     Indication: NEUROENDOCRINE TUMOUR
     Dosage: 50 UG (ONCE TEST DOSE)
     Route: 058
     Dates: start: 20130920, end: 20130920
  5. SANDOSTATIN LAR DEPOT [Suspect]
     Active Substance: OCTREOTIDE ACETATE
     Dosage: 30 MG, QMO, EVERY 4 WEEKS
     Route: 030
     Dates: start: 20151204
  6. BISOPROLOL [Concomitant]
     Active Substance: BISOPROLOL
     Indication: PRODUCT USED FOR UNKNOWN INDICATION
     Dosage: 0.5 DF, QOD
     Route: 065
  7. CHOLESTYRAMINE. [Suspect]
     Active Substance: CHOLESTYRAMINE
     Indication: DIARRHOEA
     Dosage: 4 MG, QD
     Route: 065
     Dates: start: 20161226

REACTIONS (42)
  - Incisional hernia [Unknown]
  - Rales [Unknown]
  - Nasopharyngitis [Recovering/Resolving]
  - Wound [Recovered/Resolved]
  - Frequent bowel movements [Recovered/Resolved]
  - Diarrhoea [Recovered/Resolved]
  - Flatulence [Unknown]
  - Constipation [Unknown]
  - Inappropriate schedule of drug administration [Unknown]
  - Bile acid malabsorption [Unknown]
  - Post embolisation syndrome [Unknown]
  - Fall [Unknown]
  - Fatigue [Unknown]
  - Diarrhoea [Recovering/Resolving]
  - Abasia [Unknown]
  - Blood pressure diastolic decreased [Unknown]
  - Arthralgia [Recovering/Resolving]
  - Faeces discoloured [Recovered/Resolved]
  - Heart rate decreased [Unknown]
  - Abdominal pain [Unknown]
  - Pain in extremity [Unknown]
  - Flushing [Recovered/Resolved]
  - Flushing [Unknown]
  - Upper respiratory tract infection [Unknown]
  - Body temperature decreased [Unknown]
  - Abdominal discomfort [Unknown]
  - Faeces pale [Recovered/Resolved]
  - Deep vein thrombosis [Unknown]
  - Musculoskeletal pain [Recovering/Resolving]
  - Weight decreased [Unknown]
  - Faeces hard [Unknown]
  - Dehydration [Unknown]
  - Injection site pain [Unknown]
  - Headache [Unknown]
  - Contusion [Unknown]
  - Pain [Unknown]
  - Infection [Unknown]
  - Syringe issue [Unknown]
  - Suture rupture [Unknown]
  - Anorectal discomfort [Unknown]
  - Underdose [Unknown]
  - Abdominal pain upper [Unknown]

NARRATIVE: CASE EVENT DATE: 2014
